FAERS Safety Report 5682869-6 (Version None)
Quarter: 2008Q1

REPORT INFORMATION
  Report Type: 
  Country: None (occurrence: None)
  Receive Date: 20080327
  Receipt Date: 20080317
  Transmission Date: 20080703
  Serious: Yes (Other)
  Sender: FDA-Public Use
  Company Number: B0513530A

PATIENT
  Age: 65 Year
  Sex: Female

DRUGS (3)
  1. MALARONE [Suspect]
     Indication: MALARIA PROPHYLAXIS
     Route: 048
     Dates: start: 20060101, end: 20060101
  2. ASPIRIN [Concomitant]
     Route: 065
  3. ZITHROMAX [Concomitant]
     Route: 065

REACTIONS (2)
  - ANAEMIA [None]
  - FATIGUE [None]
